FAERS Safety Report 6435258-0 (Version None)
Quarter: 2009Q4

REPORT INFORMATION
  Report Type: 
  Country: None (occurrence: None)
  Receive Date: 20091110
  Receipt Date: 20091027
  Transmission Date: 20100525
  Serious: Yes (Hospitalization)
  Sender: FDA-Public Use
  Company Number: GB-MYLANLABS-2009S1018848

PATIENT
  Age: 55 Year
  Sex: Male

DRUGS (3)
  1. ROPINIROLE [Suspect]
     Indication: PARKINSON'S DISEASE
  2. ENTACAPONE [Suspect]
     Indication: PARKINSON'S DISEASE
  3. LEVODOPA [Suspect]
     Indication: PARKINSON'S DISEASE

REACTIONS (3)
  - DEHYDRATION [None]
  - NEUROLEPTIC MALIGNANT SYNDROME [None]
  - QUADRIPARESIS [None]
